FAERS Safety Report 4927740-X (Version None)
Quarter: 2006Q1

REPORT INFORMATION
  Report Type: 
  Country: None (occurrence: None)
  Receive Date: 20060222
  Receipt Date: 20060206
  Transmission Date: 20060701
  Serious: Yes (Hospitalization)
  Sender: FDA-Public Use
  Company Number: TRP_0703_2006

PATIENT
  Age: 48 Year
  Sex: Female
  Weight: 67.1324 kg

DRUGS (9)
  1. RIBASPHERE/RIBAVIRIN/THREE RIVERS PHARMA/200 MG [Suspect]
     Indication: HEPATITIS C
     Dosage: 1200 MG QDAY PO
     Route: 048
     Dates: start: 20050503
  2. INFERGEN/INTERFERON ALFACON-1/VALEANT [Suspect]
     Indication: HEPATITIS C
     Dosage: 9 MCG QDAY SC
     Route: 058
     Dates: start: 20050503
  3. MULTI-VITAMIN [Concomitant]
  4. WALGREENS SLEEP AID [Concomitant]
  5. TYLENOL (CAPLET) [Concomitant]
  6. LEVAQUIN [Concomitant]
  7. ALBUTEROL [Concomitant]
  8. PREDNISONE [Concomitant]
  9. FLOVENT [Concomitant]

REACTIONS (5)
  - DECREASED APPETITE [None]
  - HAEMORRHAGE [None]
  - HYPOKALAEMIA [None]
  - INJECTION SITE ABSCESS [None]
  - WOUND INFECTION STAPHYLOCOCCAL [None]
